FAERS Safety Report 5598648-4 (Version None)
Quarter: 2008Q1

REPORT INFORMATION
  Report Type: 
  Country: None (occurrence: None)
  Receive Date: 20080122
  Receipt Date: 20080111
  Transmission Date: 20080703
  Serious: Yes (Hospitalization)
  Sender: FDA-Public Use
  Company Number: FR-ROCHE-541033

PATIENT
  Age: 73 Year
  Sex: Male

DRUGS (7)
  1. VESANOID [Suspect]
     Indication: DRUG USE FOR UNKNOWN INDICATION
     Dosage: 50 MG IN THE MORNING AND 40 MG IN THE EVENING
     Route: 048
     Dates: start: 20071024, end: 20071113
  2. CLONAZEPAM [Suspect]
     Indication: DRUG USE FOR UNKNOWN INDICATION
     Route: 048
     Dates: end: 20071108
  3. LEXOMIL [Suspect]
     Indication: DRUG USE FOR UNKNOWN INDICATION
     Dosage: DOSAGE REGIMEN: 0.5 DOSE DAILY
     Route: 048
     Dates: start: 20071025, end: 20071108
  4. TRAMADOL HCL [Suspect]
     Indication: DRUG USE FOR UNKNOWN INDICATION
     Dosage: DRUG NAME: TOPALGIC 100 LP
     Route: 048
     Dates: start: 20071027, end: 20071107
  5. DEXAMETHASONE TAB [Suspect]
     Indication: DRUG USE FOR UNKNOWN INDICATION
     Dosage: FORMULATION: INJECTABLE SOLUTION
     Route: 042
     Dates: start: 20071030, end: 20071104
  6. VANCOMYCIN [Suspect]
     Indication: DRUG USE FOR UNKNOWN INDICATION
     Route: 042
     Dates: start: 20071103, end: 20071107
  7. CLAFORAN [Suspect]
     Indication: DRUG USE FOR UNKNOWN INDICATION
     Dosage: FORMULATION: INJECTABLE SOLUTION
     Route: 042
     Dates: start: 20071031, end: 20071107

REACTIONS (1)
  - PANNICULITIS [None]
